FAERS Safety Report 4399202-2 (Version None)
Quarter: 2004Q3

REPORT INFORMATION
  Report Type: 
  Country: None (occurrence: None)
  Receive Date: 20040715
  Receipt Date: 20040715
  Transmission Date: 20050211
  Serious: Yes (Disabling)
  Sender: FDA-Public Use
  Company Number: None

PATIENT
  Age: 83 Year
  Sex: Female
  Weight: 65 kg

DRUGS (6)
  1. LIPITOR [Suspect]
     Indication: HYPERLIPIDAEMIA
     Dosage: 20 MG DAILY ORAL
     Route: 048
     Dates: start: 19970305, end: 20010202
  2. SYNTHROID [Concomitant]
  3. COUMADIN [Concomitant]
  4. LOPRESSOR [Concomitant]
  5. CALCIUM [Concomitant]
  6. TYLENOL [Concomitant]

REACTIONS (3)
  - BALANCE DISORDER [None]
  - NEUROPATHY PERIPHERAL [None]
  - WALKING AID USER [None]
